FAERS Safety Report 20864358 (Version 3)
Quarter: 2022Q3

REPORT INFORMATION
  Report Type: Spontaneous
  Country: US (occurrence: US)
  Receive Date: 20220523
  Receipt Date: 20220815
  Transmission Date: 20221027
  Serious: Yes (Hospitalization, Other)
  Sender: FDA-Public Use
  Company Number: US-GILEAD-2022-0582409

PATIENT
  Age: 53 Year
  Sex: Male
  Weight: 94.785 kg

DRUGS (30)
  1. ATRIPLA [Suspect]
     Active Substance: EFAVIRENZ\EMTRICITABINE\TENOFOVIR DISOPROXIL FUMARATE
     Indication: HIV infection
     Dosage: UNK
     Route: 048
     Dates: start: 2008, end: 201712
  2. ODEFSEY [Concomitant]
     Active Substance: EMTRICITABINE\RILPIVIRINE HYDROCHLORIDE\TENOFOVIR ALAFENAMIDE FUMARATE
  3. AMLODIPINE [Concomitant]
     Active Substance: AMLODIPINE BESYLATE
  4. ATORVASTATIN [Concomitant]
     Active Substance: ATORVASTATIN
  5. AZELASTINE [Concomitant]
     Active Substance: AZELASTINE
  6. BENZONATATE [Concomitant]
     Active Substance: BENZONATATE
  7. CELEBREX [Concomitant]
     Active Substance: CELECOXIB
  8. CETIRIZINE [Concomitant]
     Active Substance: CETIRIZINE HYDROCHLORIDE
  9. ASPIRIN [Concomitant]
     Active Substance: ASPIRIN
  10. CYCLOBENZAPRINE [Concomitant]
     Active Substance: CYCLOBENZAPRINE
  11. FAMOTIDINE [Concomitant]
     Active Substance: FAMOTIDINE
  12. FLUOROURACIL [Concomitant]
     Active Substance: FLUOROURACIL
  13. FLUTICASONE [Concomitant]
     Active Substance: FLUTICASONE
  14. ACETAMINOPHEN\HYDROCODONE [Concomitant]
     Active Substance: ACETAMINOPHEN\HYDROCODONE
  15. LACTASE [Concomitant]
     Active Substance: LACTASE
  16. MEDROL A [Concomitant]
  17. MELATONIN [Concomitant]
     Active Substance: MELATONIN
  18. MELOXICAM [Concomitant]
     Active Substance: MELOXICAM
  19. METRONIDAZOLE [Concomitant]
     Active Substance: METRONIDAZOLE
  20. NICOTINE TRANSDERMAL SYSTEM [Concomitant]
     Active Substance: NICOTINE
  21. PROAIR HFA [Concomitant]
     Active Substance: ALBUTEROL SULFATE
  22. RANITIDINE [Concomitant]
     Active Substance: RANITIDINE
  23. ROSUVASTATIN [Concomitant]
     Active Substance: ROSUVASTATIN
  24. SYMBICORT [Concomitant]
     Active Substance: BUDESONIDE\FORMOTEROL FUMARATE DIHYDRATE
  25. TAMSULOSIN [Concomitant]
     Active Substance: TAMSULOSIN
  26. TRAMADOL [Concomitant]
     Active Substance: TRAMADOL
  27. TRIAMCINOLONE ACETONIDE [Concomitant]
     Active Substance: TRIAMCINOLONE ACETONIDE
  28. VENTOLIN HFA [Concomitant]
     Active Substance: ALBUTEROL SULFATE
  29. DICLOFENAC DIETHYLAMINE [Concomitant]
     Active Substance: DICLOFENAC DIETHYLAMINE
  30. ZINC [Concomitant]
     Active Substance: ZINC

REACTIONS (10)
  - Chronic kidney disease [Recovered/Resolved]
  - Nephrolithiasis [Unknown]
  - Renal impairment [Unknown]
  - Acute kidney injury [Not Recovered/Not Resolved]
  - Nephropathy [Unknown]
  - Pain [Not Recovered/Not Resolved]
  - Emotional distress [Not Recovered/Not Resolved]
  - Anxiety [Not Recovered/Not Resolved]
  - Anhedonia [Not Recovered/Not Resolved]
  - Depression [Unknown]

NARRATIVE: CASE EVENT DATE: 20171001
